FAERS Safety Report 24830192 (Version 1)
Quarter: 2025Q1

REPORT INFORMATION
  Report Type: Spontaneous
  Country: US (occurrence: US)
  Receive Date: 20250110
  Receipt Date: 20250110
  Transmission Date: 20250409
  Serious: No
  Sender: PAREXEL
  Company Number: US-NOVEN PHARMACEUTICALS, INC.-2024-NOV-US001535

PATIENT
  Sex: Female

DRUGS (1)
  1. XELSTRYM [Suspect]
     Active Substance: DEXTROAMPHETAMINE
     Indication: Attention deficit hyperactivity disorder
     Route: 062

REACTIONS (9)
  - Dry skin [Not Recovered/Not Resolved]
  - Application site burn [Unknown]
  - Therapeutic product effect incomplete [Recovered/Resolved]
  - Application site erythema [Unknown]
  - Application site swelling [Unknown]
  - Application site pruritus [Unknown]
  - Application site irritation [Unknown]
  - Product administered at inappropriate site [Recovered/Resolved]
  - Product residue present [Recovered/Resolved]

NARRATIVE: CASE EVENT DATE: 20240101
